FAERS Safety Report 4303085-6 (Version None)
Quarter: 2004Q1

REPORT INFORMATION
  Report Type: 
  Country: None (occurrence: None)
  Receive Date: 20040126
  Receipt Date: 20030929
  Transmission Date: 20041129
  Serious: No
  Sender: FDA-Public Use
  Company Number: USA030948521

PATIENT
  Age: 9 Year
  Sex: Male
  Weight: 31 kg

DRUGS (2)
  1. STRATTERA [Suspect]
     Indication: ATTENTION DEFICIT/HYPERACTIVITY DISORDER
     Dosage: 25 MG/IN THE MORNING
     Dates: start: 20030821
  2. CONCERTA [Concomitant]

REACTIONS (2)
  - DENTAL CARIES [None]
  - GINGIVAL INFECTION [None]
